FAERS Safety Report 6763686-2 (Version None)
Quarter: 2010Q2

REPORT INFORMATION
  Report Type: 
  Country: None (occurrence: None)
  Receive Date: 20100610
  Receipt Date: 20100602
  Transmission Date: 20101027
  Serious: Yes (Hospitalization)
  Sender: FDA-Public Use
  Company Number: DE-ASTRAZENECA-2009PK00875

PATIENT
  Age: 79 Year
  Sex: Female

DRUGS (10)
  1. METOPROLOL SUCCINATE [Suspect]
     Indication: HYPERTENSION
     Route: 048
     Dates: end: 20081119
  2. DIGITOXIN [Suspect]
     Indication: CARDIAC FAILURE
     Route: 048
     Dates: end: 20081119
  3. GLIMEPIRIDE [Concomitant]
     Indication: TYPE 2 DIABETES MELLITUS
     Route: 048
     Dates: end: 20081128
  4. ALLOPURINOL [Concomitant]
     Indication: HYPERURICAEMIA
     Route: 048
     Dates: end: 20081118
  5. ASPIRIN [Concomitant]
     Indication: PROPHYLAXIS
     Route: 048
  6. NIFEDIPINE [Concomitant]
     Indication: HYPERTENSION
     Route: 048
     Dates: end: 20081120
  7. RAMIPRIL [Concomitant]
     Indication: HYPERTENSION
     Route: 048
  8. RASILEZ [Concomitant]
     Indication: HYPERTENSION
     Route: 048
     Dates: start: 20080801
  9. ACTRAPHANE [Concomitant]
     Indication: TYPE 2 DIABETES MELLITUS
     Dosage: 30/70, THREE TIMES A DAY, AS REQUIRED
     Route: 058
  10. TORSEMIDE [Concomitant]
     Indication: OEDEMA
     Route: 048

REACTIONS (1)
  - SINUS BRADYCARDIA [None]
